FAERS Safety Report 22967677 (Version 2)
Quarter: 2023Q4

REPORT INFORMATION
  Report Type: Report from Study
  Country: TH (occurrence: TH)
  Receive Date: 20230921
  Receipt Date: 20231109
  Transmission Date: 20240109
  Serious: Yes (Hospitalization)
  Sender: FDA-Public Use
  Company Number: TH-IPSEN Group, Research and Development-2023-20636

PATIENT
  Age: 68 Year
  Sex: Male

DRUGS (3)
  1. CABOMETYX [Suspect]
     Active Substance: CABOZANTINIB S-MALATE
     Indication: Renal cell carcinoma
     Dosage: 60 MG, QD
     Route: 048
     Dates: start: 20230717
  2. CABOMETYX [Suspect]
     Active Substance: CABOZANTINIB S-MALATE
     Dosage: 60 MG, QOD
     Route: 048
     Dates: start: 20230822
  3. CABOMETYX [Suspect]
     Active Substance: CABOZANTINIB S-MALATE
     Dosage: 40 MG, QOD
     Route: 048
     Dates: start: 20231009

REACTIONS (11)
  - Psoriasis [Unknown]
  - Arrhythmia [Unknown]
  - Mouth ulceration [Unknown]
  - Hyperthyroidism [Unknown]
  - Decreased appetite [Unknown]
  - Hypomagnesaemia [Unknown]
  - Oropharyngeal pain [Unknown]
  - Stomatitis [Unknown]
  - Dysphonia [Unknown]
  - Weight decreased [Unknown]
  - Off label use [Unknown]

NARRATIVE: CASE EVENT DATE: 20230901
